FAERS Safety Report 24276224 (Version 2)
Quarter: 2024Q4

REPORT INFORMATION
  Report Type: Spontaneous
  Country: MX (occurrence: MX)
  Receive Date: 20240903
  Receipt Date: 20241015
  Transmission Date: 20250114
  Serious: No
  Sender: BECTON DICKINSON
  Company Number: MX-BECTON DICKINSON-MX-BD-24-000525

PATIENT

DRUGS (1)
  1. CHLORAPREP [Suspect]
     Active Substance: CHLORHEXIDINE GLUCONATE\ISOPROPYL ALCOHOL
     Indication: Product used for unknown indication
     Dosage: N/A
     Route: 065

REACTIONS (1)
  - Device physical property issue [Unknown]
